FAERS Safety Report 6958482-7 (Version None)
Quarter: 2010Q3

REPORT INFORMATION
  Report Type: 
  Country: None (occurrence: None)
  Receive Date: 20100830
  Receipt Date: 20100830
  Transmission Date: 20110219
  Serious: Yes (Hospitalization)
  Sender: FDA-Public Use
  Company Number: None

PATIENT
  Age: 73 Year
  Sex: Female
  Weight: 49.8957 kg

DRUGS (1)
  1. DOXYCYCLINE HYCLATE [Suspect]
     Indication: SINUSITIS
     Dosage: 1 2X DOZ.
     Dates: start: 20081105, end: 20090330

REACTIONS (4)
  - APPARENT DEATH [None]
  - BLOOD GLUCOSE INCREASED [None]
  - DEHYDRATION [None]
  - VEIN DISORDER [None]
